FAERS Safety Report 6072951-6 (Version None)
Quarter: 2009Q1

REPORT INFORMATION
  Report Type: 
  Country: None (occurrence: None)
  Receive Date: 20090205
  Receipt Date: 20090128
  Transmission Date: 20090719
  Serious: Yes (Other)
  Sender: FDA-Public Use
  Company Number: CHPA2009US01205

PATIENT
  Age: 31 Year
  Sex: Female
  Weight: 68 kg

DRUGS (3)
  1. NICOTINE [Suspect]
     Indication: SMOKING CESSATION THERAPY
     Dosage: 21 MG, QD, TRANSDERMAL; 14 MG, TRANSDERMAL
     Route: 062
     Dates: start: 20090122, end: 20090124
  2. NICOTINE [Suspect]
     Indication: SMOKING CESSATION THERAPY
     Dosage: 14 MG, QD, TRANSDERMAL
     Dates: start: 20090126, end: 20090128
  3. NICOTINE [Suspect]
     Indication: SMOKING CESSATION THERAPY
     Dosage: 14 MG, QD, TRANSDERMAL
     Dates: start: 20090126

REACTIONS (7)
  - APPLICATION SITE ERYTHEMA [None]
  - CHEST PAIN [None]
  - DIZZINESS [None]
  - HALLUCINATION, AUDITORY [None]
  - HEART RATE INCREASED [None]
  - RASH GENERALISED [None]
  - TREMOR [None]
